FAERS Safety Report 15839075 (Version 2)
Quarter: 2019Q1

REPORT INFORMATION
  Report Type: Spontaneous
  Country: US (occurrence: US)
  Receive Date: 20190117
  Receipt Date: 20190207
  Transmission Date: 20190417
  Serious: Yes (Hospitalization)
  Sender: FDA-Public Use
  Company Number: PHEH2019US002200

PATIENT
  Age: 62 Year
  Sex: Male
  Weight: 82 kg

DRUGS (11)
  1. FLUDARABIN [Concomitant]
     Active Substance: FLUDARABINE PHOSPHATE
     Indication: PRODUCT USED FOR UNKNOWN INDICATION
     Dosage: 25 MG/M2 X 2.03 M2
     Route: 065
     Dates: start: 20181229
  2. FLUDARABIN [Concomitant]
     Active Substance: FLUDARABINE PHOSPHATE
     Dosage: 25 MG/M2 X 2.03 M2
     Route: 065
     Dates: start: 20181230
  3. CYTOXAN [Concomitant]
     Active Substance: CYCLOPHOSPHAMIDE
     Indication: PRODUCT USED FOR UNKNOWN INDICATION
     Dosage: 250 MG/M2 X 2.03 M2
     Route: 065
     Dates: start: 20181229
  4. ACTEMRA [Concomitant]
     Active Substance: TOCILIZUMAB
     Indication: PYREXIA
     Dosage: 640 MG, ONCE/SINGLE
     Route: 042
     Dates: start: 20190108, end: 20190108
  5. ACTEMRA [Concomitant]
     Active Substance: TOCILIZUMAB
     Indication: CYTOKINE RELEASE SYNDROME
  6. TYLENOL [Concomitant]
     Active Substance: ACETAMINOPHEN
     Indication: PYREXIA
     Dosage: GIVEN 3 TIMES
     Route: 048
  7. TYLENOL [Concomitant]
     Active Substance: ACETAMINOPHEN
     Dosage: 650 MG, (GIVEN TOTAL OF 4X)
     Route: 048
     Dates: start: 20190106, end: 20190108
  8. CYTOXAN [Concomitant]
     Active Substance: CYCLOPHOSPHAMIDE
     Dosage: 250 MG/M2 X 2.03 M2
     Route: 065
     Dates: start: 20181230
  9. KYMRIAH [Suspect]
     Active Substance: TISAGENLECLEUCEL
     Indication: DIFFUSE LARGE B-CELL LYMPHOMA REFRACTORY
     Dosage: 16 ML, ONCE/SINGLE
     Route: 042
     Dates: start: 20190103
  10. CYTOXAN [Concomitant]
     Active Substance: CYCLOPHOSPHAMIDE
     Dosage: 250 MG/M2 X 2.03 M2
     Route: 065
     Dates: start: 20181231
  11. FLUDARABIN [Concomitant]
     Active Substance: FLUDARABINE PHOSPHATE
     Dosage: 25 MG/M2 X 2.03 M2
     Route: 065
     Dates: start: 20181231

REACTIONS (9)
  - Rhinorrhoea [Recovered/Resolved]
  - Upper respiratory tract infection [Recovered/Resolved]
  - Cough [Recovered/Resolved]
  - Fatigue [Unknown]
  - Human rhinovirus test positive [Unknown]
  - Malaise [Recovered/Resolved]
  - Cough [Recovered/Resolved]
  - C-reactive protein increased [Unknown]
  - Pyrexia [Recovered/Resolved]

NARRATIVE: CASE EVENT DATE: 20190106
